FAERS Safety Report 6370827-8 (Version None)
Quarter: 2009Q3

REPORT INFORMATION
  Report Type: 
  Country: None (occurrence: None)
  Receive Date: 20090923
  Receipt Date: 20070622
  Transmission Date: 20100115
  Serious: Yes (Other)
  Sender: FDA-Public Use
  Company Number: US-ASTRAZENECA-2006UW24126

PATIENT
  Age: 15278 Day
  Sex: Female
  Weight: 92.5 kg

DRUGS (16)
  1. SEROQUEL [Suspect]
     Indication: MENTAL DISORDER
     Route: 048
     Dates: start: 19970101, end: 19970101
  2. SEROQUEL [Suspect]
     Indication: DEPRESSION
     Route: 048
     Dates: start: 19970101, end: 19970101
  3. SEROQUEL [Suspect]
     Indication: SLEEP DISORDER
     Route: 048
     Dates: start: 19970101, end: 19970101
  4. SEROQUEL [Suspect]
     Indication: PSYCHOTIC DISORDER
     Route: 048
     Dates: start: 19970101, end: 19970101
  5. SEROQUEL [Suspect]
     Route: 048
     Dates: start: 20020612, end: 20020826
  6. SEROQUEL [Suspect]
     Route: 048
     Dates: start: 20020612, end: 20020826
  7. SEROQUEL [Suspect]
     Route: 048
     Dates: start: 20020612, end: 20020826
  8. SEROQUEL [Suspect]
     Route: 048
     Dates: start: 20020612, end: 20020826
  9. ABILIFY [Suspect]
  10. ZYPREXA [Suspect]
     Dates: start: 19990806
  11. ZYPREXA [Suspect]
  12. LAMOTRIGINE [Concomitant]
  13. HALDOL [Concomitant]
     Dosage: 1 MG TO 15 MG
     Route: 048
     Dates: start: 19890926
  14. CONGENTIN/ BENZTROPINE [Concomitant]
     Route: 048
     Dates: start: 19890926
  15. LITHIUM CARBONATE [Concomitant]
     Dates: start: 19990806
  16. PROPRANOLOL [Concomitant]
     Indication: ANXIETY
     Dates: start: 19990806

REACTIONS (6)
  - DIABETES MELLITUS [None]
  - DIABETIC KETOACIDOSIS [None]
  - HYPERPROLACTINAEMIA [None]
  - PANCREATITIS [None]
  - TARDIVE DYSKINESIA [None]
  - TYPE 2 DIABETES MELLITUS [None]
